FAERS Safety Report 5267790-X (Version None)
Quarter: 2007Q1

REPORT INFORMATION
  Report Type: 
  Country: None (occurrence: None)
  Receive Date: 20070316
  Receipt Date: 20070306
  Transmission Date: 20070707
  Serious: Yes (Other)
  Sender: FDA-Public Use
  Company Number: US-PFIZER INC-2007017852

PATIENT
  Sex: Male

DRUGS (1)
  1. XANAX [Suspect]

REACTIONS (3)
  - DEPRESSION [None]
  - MENTAL DISORDER [None]
  - SUICIDAL IDEATION [None]
